FAERS Safety Report 14594531 (Version 1)
Quarter: 2018Q1

REPORT INFORMATION
  Report Type: Spontaneous
  Country: GB (occurrence: GB)
  Receive Date: 20180302
  Receipt Date: 20180302
  Transmission Date: 20180509
  Serious: Yes (Disabling)
  Sender: FDA-Public Use
  Company Number: GB-TEVA-2018-GB-863657

PATIENT
  Age: 90 Year

DRUGS (1)
  1. TEVA UK LEVOFLOXACIN [Suspect]
     Active Substance: LEVOFLOXACIN
     Route: 048

REACTIONS (1)
  - Tendonitis [Recovering/Resolving]
